FAERS Safety Report 22773661 (Version 4)
Quarter: 2024Q4

REPORT INFORMATION
  Report Type: Report from Study
  Country: JP (occurrence: JP)
  Receive Date: 20230801
  Receipt Date: 20241230
  Transmission Date: 20250115
  Serious: Yes (Death)
  Sender: ROCHE
  Company Number: JP-CHUGAI-2023027050AA

PATIENT
  Age: 83 Year
  Sex: Male
  Weight: 43 kg

DRUGS (7)
  1. EVRYSDI [Suspect]
     Active Substance: RISDIPLAM
     Indication: Spinal muscular atrophy
     Route: 048
     Dates: start: 20230606, end: 20230820
  2. HERBESSER [Concomitant]
     Active Substance: DILTIAZEM HYDROCHLORIDE
     Dosage: PERORAL AGENT
     Route: 048
     Dates: end: 20230820
  3. NICORANDIL [Concomitant]
     Active Substance: NICORANDIL
     Route: 048
     Dates: end: 20230820
  4. ISOSORBIDE DINITRATE [Concomitant]
     Active Substance: ISOSORBIDE DINITRATE
     Dosage: PERORAL AGENT
     Route: 048
     Dates: end: 20230820
  5. REBAMIPIDE [Concomitant]
     Active Substance: REBAMIPIDE
     Dosage: PERORAL AGENT
     Route: 048
     Dates: end: 20230820
  6. AMLODIPINE BESYLATE\TELMISARTAN [Concomitant]
     Active Substance: AMLODIPINE BESYLATE\TELMISARTAN
     Route: 048
     Dates: end: 20230820
  7. ISOSORBIDE DINITRATE [Concomitant]
     Active Substance: ISOSORBIDE DINITRATE
     Route: 048
     Dates: end: 20240820

REACTIONS (3)
  - Product dose omission issue [Unknown]
  - Coronavirus infection [Fatal]
  - Pneumonia [Fatal]

NARRATIVE: CASE EVENT DATE: 20230724
